FAERS Safety Report 9422160 (Version 1)
Quarter: 2013Q3

REPORT INFORMATION
  Report Type: Spontaneous
  Country: US (occurrence: US)
  Receive Date: 20130726
  Receipt Date: 20130726
  Transmission Date: 20140515
  Serious: No
  Sender: FDA-Public Use
  Company Number: US-BAYER-2013-089391

PATIENT
  Age: 68 Year
  Sex: Female

DRUGS (2)
  1. CIPRO [Suspect]
     Indication: URINARY TRACT INFECTION
  2. VICTOZA [Interacting]

REACTIONS (1)
  - Drug interaction [None]
